FAERS Safety Report 12521458 (Version 1)
Quarter: 2016Q3

REPORT INFORMATION
  Report Type: Spontaneous
  Country: DE (occurrence: DE)
  Receive Date: 20160701
  Receipt Date: 20160701
  Transmission Date: 20161109
  Serious: Yes (Congenital Anomaly)
  Sender: FDA-Public Use
  Company Number: DE-SUN PHARMACEUTICAL INDUSTRIES LTD-2016RR-119534

PATIENT
  Sex: Male
  Weight: 3.26 kg

DRUGS (3)
  1. FEMIBION [Concomitant]
     Active Substance: VITAMINS
     Indication: PROPHYLAXIS OF NEURAL TUBE DEFECT
     Dosage: DOSAGE UNKNOWN, GESTATIONAL WEEKS 7.2-39.1
     Route: 064
     Dates: start: 20150520, end: 20151229
  2. LORATADINE. [Suspect]
     Active Substance: LORATADINE
     Indication: HYPERSENSITIVITY
     Dosage: 1 TABLET PER DAY, DOSAGE UNKNOWN, DURING GESTATIONAL WEEKS 6.4-28.3
     Route: 064
  3. L-THYROXIN [Concomitant]
     Active Substance: LEVOTHYROXINE SODIUM
     Indication: HYPOTHYROIDISM
     Dosage: DOSAGE UNKNOWN, GESTATIONAL WEEKS 0-39.1
     Route: 064
     Dates: start: 20150330, end: 20151229

REACTIONS (2)
  - Pulmonary artery stenosis [Unknown]
  - Atrial septal defect [Unknown]
